FAERS Safety Report 13513821 (Version 1)
Quarter: 2017Q2

REPORT INFORMATION
  Report Type: Spontaneous
  Country: LB (occurrence: LB)
  Receive Date: 20170504
  Receipt Date: 20170504
  Transmission Date: 20170830
  Serious: Yes (Hospitalization, Other)
  Sender: FDA-Public Use
  Company Number: LB-AUROBINDO-AUR-APL-2017-33371

PATIENT
  Age: 28 Year
  Sex: Female

DRUGS (1)
  1. PARACETAMOL [Suspect]
     Active Substance: ACETAMINOPHEN
     Indication: HEADACHE
     Dosage: UNK
     Route: 065

REACTIONS (4)
  - Haematuria [Recovered/Resolved]
  - Renal papillary necrosis [Unknown]
  - Renal ischaemia [Unknown]
  - Vesicoureteric reflux [Unknown]
